FAERS Safety Report 15482010 (Version 1)
Quarter: 2018Q4

REPORT INFORMATION
  Report Type: Spontaneous
  Country: AU (occurrence: AU)
  Receive Date: 20181010
  Receipt Date: 20181010
  Transmission Date: 20190205
  Serious: Yes (Death, Hospitalization)
  Sender: FDA-Public Use
  Company Number: AU-ROCHE-2196912

PATIENT
  Age: 6 Day
  Sex: Male

DRUGS (7)
  1. CAFFEINE CITRATE. [Concomitant]
     Active Substance: CAFFEINE CITRATE
  2. CHOLECALCIFEROL [Concomitant]
     Active Substance: CHOLECALCIFEROL
  3. AVASTIN [Suspect]
     Active Substance: BEVACIZUMAB
     Indication: NORRIE^S DISEASE
     Dosage: 100MG/4ML, 1 INJECTION 1 TIME
     Route: 050
     Dates: start: 20170602, end: 20170602
  4. PARACETAMOL [Concomitant]
     Active Substance: ACETAMINOPHEN
  5. CYCLOPENTOLATE. [Concomitant]
     Active Substance: CYCLOPENTOLATE
     Route: 065
  6. SUCROSE [Concomitant]
     Active Substance: SUCROSE
     Route: 048
  7. PHENYLEPHRINE [Concomitant]
     Active Substance: PHENYLEPHRINE\PHENYLEPHRINE HYDROCHLORIDE

REACTIONS (5)
  - Intestinal perforation [Fatal]
  - Off label use [Fatal]
  - Intentional product use issue [Fatal]
  - Sepsis [Fatal]
  - Septic shock [Fatal]

NARRATIVE: CASE EVENT DATE: 20170604
